FAERS Safety Report 8350743-2 (Version None)
Quarter: 2012Q2

REPORT INFORMATION
  Report Type: 
  Country: None (occurrence: None)
  Receive Date: 20120510
  Receipt Date: 20120315
  Transmission Date: 20120825
  Serious: Yes (Congenital Anomaly, Other)
  Sender: FDA-Public Use
  Company Number: US-GLAXOSMITHKLINE-A0969905A

PATIENT
  Age: 58 Year
  Sex: Female

DRUGS (7)
  1. VASOTEC [Concomitant]
  2. LOPID [Concomitant]
  3. BUMEX [Concomitant]
  4. NIACIN [Concomitant]
  5. CORGARD [Concomitant]
  6. VERAMYST [Suspect]
     Indication: SEASONAL ALLERGY
     Dosage: 1SPR SINGLE DOSE
     Route: 045
     Dates: start: 20120314, end: 20120314
  7. POTASSIUM CHLORIDE [Concomitant]

REACTIONS (3)
  - RHINORRHOEA [None]
  - COUGH [None]
  - BRONCHITIS [None]
